FAERS Safety Report 4414273-2 (Version None)
Quarter: 2004Q3

REPORT INFORMATION
  Report Type: 
  Country: None (occurrence: None)
  Receive Date: 20040803
  Receipt Date: 20040705
  Transmission Date: 20050211
  Serious: Yes (Hospitalization)
  Sender: FDA-Public Use
  Company Number: PHFR2004IE02730

PATIENT
  Age: 30 Year
  Sex: Male

DRUGS (5)
  1. CLOZARIL [Suspect]
     Indication: SCHIZOPHRENIA
     Dosage: UNK, UNK
     Route: 048
     Dates: start: 20011112, end: 20040701
  2. RISPERIDONE [Concomitant]
     Indication: SCHIZOPHRENIA
     Dosage: 3 MG, BID
     Route: 048
  3. CIPRAMIL [Concomitant]
     Indication: SCHIZOPHRENIA
     Dosage: 50 MG/DAY
     Route: 048
  4. KEMADRIN [Concomitant]
     Indication: SCHIZOPHRENIA
     Dosage: 5 MG, BID
     Route: 048
  5. VALPROIC ACID [Concomitant]
     Dosage: 200 MG, BID
     Route: 048

REACTIONS (5)
  - CHEST PAIN [None]
  - PERICARDIAL EFFUSION [None]
  - PERICARDIAL RUB [None]
  - PERICARDITIS [None]
  - WEIGHT INCREASED [None]
